FAERS Safety Report 8178691-1 (Version None)
Quarter: 2012Q1

REPORT INFORMATION
  Report Type: 
  Country: None (occurrence: None)
  Receive Date: 20120301
  Receipt Date: 20120221
  Transmission Date: 20120608
  Serious: Yes (Hospitalization)
  Sender: FDA-Public Use
  Company Number: DE-ASTRAZENECA-2012SE11951

PATIENT
  Age: 81 Year
  Sex: Female

DRUGS (8)
  1. METOPROLOL SUCCINATE [Interacting]
     Route: 048
     Dates: end: 20111202
  2. CITALOPRAM HYDROBROMIDE [Suspect]
     Route: 048
     Dates: end: 20111201
  3. OMEPRAZOLE [Interacting]
     Route: 048
     Dates: end: 20111201
  4. MORPHINE [Suspect]
     Route: 048
     Dates: end: 20111204
  5. MORPHINE [Suspect]
     Route: 048
     Dates: start: 20111205, end: 20111207
  6. MORPHINE [Suspect]
     Route: 048
     Dates: start: 20111212, end: 20111214
  7. ARICEPT [Suspect]
     Route: 048
     Dates: start: 20111129, end: 20111201
  8. MORPHINE [Suspect]
     Route: 048
     Dates: start: 20111208, end: 20111211

REACTIONS (2)
  - DRUG INTERACTION [None]
  - VOMITING [None]
